FAERS Safety Report 21581988 (Version 1)
Quarter: 2022Q4

REPORT INFORMATION
  Report Type: Spontaneous
  Country: US (occurrence: US)
  Receive Date: 20221111
  Receipt Date: 20221111
  Transmission Date: 20230113
  Serious: No
  Sender: FDA-Public Use
  Company Number: US-ELI_LILLY_AND_COMPANY-US202211004471

PATIENT
  Sex: Female

DRUGS (4)
  1. ZYPREXA ZYDIS [Suspect]
     Active Substance: OLANZAPINE
     Indication: Schizophrenia
     Dosage: 20 MG, UNKNOWN
     Route: 048
     Dates: start: 202109
  2. ZYPREXA ZYDIS [Suspect]
     Active Substance: OLANZAPINE
     Indication: Mania
     Dosage: 40 MG, DAILY
     Route: 048
  3. OLANZAPINE [Suspect]
     Active Substance: OLANZAPINE
     Indication: Schizophrenia
     Dosage: 20 MG, UNKNOWN
     Route: 048
     Dates: start: 202207
  4. OLANZAPINE [Suspect]
     Active Substance: OLANZAPINE
     Indication: Mania

REACTIONS (4)
  - Hallucination, auditory [Not Recovered/Not Resolved]
  - Somnambulism [Not Recovered/Not Resolved]
  - Patient elopement [Not Recovered/Not Resolved]
  - Overdose [Unknown]
